FAERS Safety Report 4410884-9 (Version None)
Quarter: 2004Q2

REPORT INFORMATION
  Report Type: 
  Country: None (occurrence: None)
  Receive Date: 20040630
  Receipt Date: 20040414
  Transmission Date: 20050107
  Serious: No
  Sender: FDA-Public Use
  Company Number: 04P-163-0257723-00

PATIENT
  Age: 73 Year
  Sex: Female
  Weight: 48.9885 kg

DRUGS (7)
  1. HUMIRA [Suspect]
     Indication: RHEUMATOID ARTHRITIS
     Dosage: 40 MG, SUBCUTANEOUS
     Route: 058
     Dates: start: 20030401, end: 20031201
  2. HUMIRA [Suspect]
     Indication: RHEUMATOID ARTHRITIS
     Dosage: 40 MG, SUBCUTANEOUS
     Route: 058
     Dates: start: 20040101
  3. ROFECOXIB [Concomitant]
  4. AMLODIPINE BESYLATE [Concomitant]
  5. CLOPIDOGREL BISULFATE [Concomitant]
  6. ASPIRIN [Concomitant]
  7. ALENDRONATE SODIUM [Concomitant]

REACTIONS (4)
  - CAROTID ARTERY OCCLUSION [None]
  - CONDITION AGGRAVATED [None]
  - DIZZINESS [None]
  - UPPER RESPIRATORY TRACT INFECTION [None]
